FAERS Safety Report 7359192-7 (Version None)
Quarter: 2011Q1

REPORT INFORMATION
  Report Type: 
  Country: None (occurrence: None)
  Receive Date: 20110317
  Receipt Date: 20110314
  Transmission Date: 20110831
  Serious: Yes (Death, Hospitalization)
  Sender: FDA-Public Use
  Company Number: BE-ELI_LILLY_AND_COMPANY-BE201010003113

PATIENT
  Sex: Female

DRUGS (23)
  1. DAFALGAN [Concomitant]
     Dosage: 1 G, 4/D
     Route: 065
  2. OMEPRAZOLE [Concomitant]
     Dosage: 20 MG, DAILY (1/D)
     Route: 065
  3. CORUNO [Concomitant]
     Dosage: 16 MG, DAILY (1/D)
     Route: 065
  4. DOLZAM [Concomitant]
     Dosage: 50 MG, 3/D
     Route: 065
  5. FUROSEMIDE [Concomitant]
     Dosage: 1 D/F, DAILY (1/D)
     Route: 065
  6. ZESTRIL [Concomitant]
     Dosage: 20 MG, DAILY (1/D)
     Route: 065
  7. CORDARONE [Concomitant]
     Dosage: 200 MG, DAILY (1/D)
     Route: 065
  8. FERO-GRADUMET [Concomitant]
     Dosage: 1 D/F, DAILY (1/D)
     Route: 065
  9. TOBRADEX [Concomitant]
     Dosage: UNK, UNKNOWN
     Route: 065
  10. AMLOR [Concomitant]
     Dosage: 5 MG, DAILY (1/D)
     Route: 065
  11. MEDROL [Concomitant]
     Dosage: 4 MG, 3/D
     Route: 065
  12. LYSOMUCIL [Concomitant]
     Dosage: 600 MG, DAILY (1/D)
     Route: 065
  13. MOTILIUM [Concomitant]
     Dosage: 10 MG, 3/D
     Route: 065
  14. SIPRALEXA [Concomitant]
     Dosage: 10 MG, DAILY (1/D)
     Route: 065
  15. ATROVENT [Concomitant]
     Dosage: 250 UG, DAILY (1/D)
     Route: 065
  16. FORTEO [Suspect]
     Indication: OSTEOPOROSIS
     Dosage: 20 UG, DAILY (1/D)
     Route: 058
     Dates: start: 20101001
  17. ALPRAZOLAM [Concomitant]
     Dosage: 0.5 MG, DAILY (1/D)
     Route: 065
  18. COMBIVENT [Concomitant]
     Dosage: 1 D/F, 2/D
     Route: 065
  19. INDOCOLLYRE [Concomitant]
     Dosage: 1 GTT, 3/D
  20. OXYGEN [Concomitant]
     Dosage: 3 D/F, OTHER
  21. BUSCOPAN [Concomitant]
     Dosage: 10 MG, 3/D
     Route: 065
  22. CALCIUM SANDOZ [Concomitant]
     Dosage: 2 D/F, DAILY (1/D)
     Route: 065
  23. BACTROBAN [Concomitant]
     Dosage: UNK, UNKNOWN
     Route: 065

REACTIONS (2)
  - DEATH [None]
  - PNEUMONIA [None]
